FAERS Safety Report 8457625-6 (Version None)
Quarter: 2012Q2

REPORT INFORMATION
  Report Type: 
  Country: None (occurrence: None)
  Receive Date: 20120622
  Receipt Date: 20120612
  Transmission Date: 20120825
  Serious: Yes (Death)
  Sender: FDA-Public Use
  Company Number: FR-BRISTOL-MYERS SQUIBB COMPANY-16681629

PATIENT
  Age: 36 Year
  Sex: Male

DRUGS (3)
  1. ABILIFY [Suspect]
     Route: 048
     Dates: start: 20120201, end: 20120524
  2. DEPAKOTE [Suspect]
     Route: 048
     Dates: end: 20120524
  3. PRAZEPAM [Suspect]
     Route: 048
     Dates: end: 20120524

REACTIONS (1)
  - SUDDEN DEATH [None]
